FAERS Safety Report 11131845 (Version 2)
Quarter: 2015Q2

REPORT INFORMATION
  Report Type: Spontaneous
  Country: FR (occurrence: FR)
  Receive Date: 20150522
  Receipt Date: 20150630
  Transmission Date: 20150821
  Serious: Yes (Hospitalization)
  Sender: FDA-Public Use
  Company Number: FR-009507513-1505FRA010202

PATIENT
  Sex: Male

DRUGS (1)
  1. AERIUS [Suspect]
     Active Substance: DESLORATADINE
     Indication: SEASONAL ALLERGY
     Dosage: UNK
     Route: 048
     Dates: start: 2015, end: 2015

REACTIONS (1)
  - Nephrotic syndrome [Recovering/Resolving]

NARRATIVE: CASE EVENT DATE: 2015
